FAERS Safety Report 4332805-X (Version None)
Quarter: 2004Q1

REPORT INFORMATION
  Report Type: 
  Country: None (occurrence: None)
  Receive Date: 20040330
  Receipt Date: 20031223
  Transmission Date: 20041129
  Serious: No
  Sender: FDA-Public Use
  Company Number: A02200303568

PATIENT
  Age: 70 Year
  Sex: Male

DRUGS (6)
  1. PLAVIX [Suspect]
     Dosage: 75 MG OD
     Route: 048
  2. RAMIPRIL [Concomitant]
  3. XATRAL (ALFUZOSIN) [Concomitant]
  4. PRAXILENE (NAFTIDROFURYL OXALATE) [Concomitant]
  5. PNEUMOREL (FENSPIRIDE HYDROCHLORIDE) [Concomitant]
  6. LASIX [Concomitant]

REACTIONS (2)
  - PNEUMONIA ASPIRATION [None]
  - REFRACTORY ANAEMIA [None]
